FAERS Safety Report 9447398 (Version 4)
Quarter: 2013Q4

REPORT INFORMATION
  Report Type: Report from Study
  Country: JP (occurrence: JP)
  Receive Date: 20130808
  Receipt Date: 20131030
  Transmission Date: 20140711
  Serious: Yes (Hospitalization)
  Sender: FDA-Public Use
  Company Number: JP-PFIZER INC-2013223153

PATIENT
  Age: 53 Year
  Sex: Female
  Weight: 57.8 kg

DRUGS (8)
  1. TOFACITINIB CITRATE [Suspect]
     Indication: RHEUMATOID ARTHRITIS
     Dosage: 5 MG, 2X/DAY
     Route: 048
     Dates: start: 20091027, end: 20130814
  2. DICLOFENAC SODIUM [Concomitant]
     Indication: RHEUMATOID ARTHRITIS
     Dosage: 37.5 MG, 1X/DAY
     Route: 048
     Dates: start: 20000225
  3. REBAMIPIDE [Concomitant]
     Indication: GASTRITIS PROPHYLAXIS
     Dosage: 100 MG, 1X/DAY
     Route: 048
     Dates: start: 20021129
  4. PRAVASTATIN SODIUM [Concomitant]
     Indication: HYPERLIPIDAEMIA
     Dosage: 10 MG, 1X/DAY
     Route: 048
     Dates: start: 20090403
  5. LIRANAFTATE [Concomitant]
     Indication: TINEA MANUUM
     Dosage: ADEQUATE DOSE
     Route: 003
     Dates: start: 20121203
  6. ASCORBIC ACID [Concomitant]
     Indication: SOLAR LENTIGO
     Dosage: 1 G, 3X/DAY
     Route: 048
     Dates: start: 20130304
  7. KERATINAMIN KOWA CREAM [Concomitant]
     Indication: HYPERKERATOSIS
     Dosage: ADEQUATE DOSE
     Route: 003
     Dates: start: 20130121
  8. SALICYLIC ACID [Concomitant]
     Indication: HYPERKERATOSIS
     Dosage: ADEQUATE DOSE
     Route: 003
     Dates: start: 20130121

REACTIONS (2)
  - Tendon rupture [Recovered/Resolved]
  - Tendon rupture [Recovered/Resolved]
